FAERS Safety Report 8889483 (Version 1)
Quarter: 2012Q4

REPORT INFORMATION
  Report Type: Spontaneous
  Country: MX (occurrence: None)
  Receive Date: 20121031
  Receipt Date: 20121031
  Transmission Date: 20130627
  Serious: Yes (Other)
  Sender: FDA-Public Use
  Company Number: IMP_06039_2012

PATIENT
  Age: 47 Year
  Sex: Male

DRUGS (2)
  1. CHLOROQUINE [Suspect]
     Indication: VASCULITIS
  2. PREDNISONE [Concomitant]

REACTIONS (5)
  - Vision blurred [None]
  - Diplopia [None]
  - VIth nerve disorder [None]
  - Paresis cranial nerve [None]
  - Cerebral atrophy [None]
